FAERS Safety Report 20782884 (Version 1)
Quarter: 2022Q2

REPORT INFORMATION
  Report Type: Spontaneous
  Country: NL (occurrence: None)
  Receive Date: 20220504
  Receipt Date: 20220504
  Transmission Date: 20220721
  Serious: Yes (Life-Threatening)
  Sender: FDA-Public Use
  Company Number: 2022A168680

PATIENT
  Age: 76 Year
  Sex: Female
  Weight: 99 kg

DRUGS (14)
  1. DAPAGLIFLOZIN [Suspect]
     Active Substance: DAPAGLIFLOZIN
     Indication: Chronic kidney disease
     Dosage: TABLET, 10 MG (MILLIGRAM),10.0MG UNKNOWN
     Route: 065
     Dates: start: 20220221, end: 20220408
  2. DAPAGLIFLOZIN [Suspect]
     Active Substance: DAPAGLIFLOZIN
     Indication: Diabetes mellitus
     Dosage: TABLET, 10 MG (MILLIGRAM),10.0MG UNKNOWN
     Route: 065
     Dates: start: 20220221, end: 20220408
  3. DAPAGLIFLOZIN [Suspect]
     Active Substance: DAPAGLIFLOZIN
     Indication: Proteinuria
     Dosage: TABLET, 10 MG (MILLIGRAM),10.0MG UNKNOWN
     Route: 065
     Dates: start: 20220221, end: 20220408
  4. FUROSEMIDE [Concomitant]
     Active Substance: FUROSEMIDE
     Dosage: TABLET, 40 MG (MILLIGRAM)
  5. CALCIUMCARB [Concomitant]
  6. EPLERENONE [Concomitant]
     Active Substance: EPLERENONE
     Dosage: TABLET, 25 MG (MILLIGRAM)
  7. GLIMEPIRIDE [Concomitant]
     Active Substance: GLIMEPIRIDE
     Dosage: TABLET, 6 MG (MILLIGRAM)
  8. METOPROLOL [Concomitant]
     Active Substance: METOPROLOL
     Dosage: TABLET MET GEREGULEERDE AFGIFTE, 200 MG (MILLIGRAM)
  9. SEMAGLUTIDE [Concomitant]
     Active Substance: SEMAGLUTIDE
     Dosage: INJECTIEVLOEISTOF, 1 MG/DOSIS (MILLIGRAM PER DOSIS)
  10. PRAVASTATIN [Concomitant]
     Active Substance: PRAVASTATIN
     Dosage: TABLET, 40 MG (MILLIGRAM)
  11. PRAMIPEXOLE [Concomitant]
     Active Substance: PRAMIPEXOLE
     Dosage: TABLET, 0,125 MG (MILLIGRAM)
  12. OMEPRAZOLE [Concomitant]
     Active Substance: OMEPRAZOLE
     Dosage: MAAGSAPRESISTENTE CAPSULE, 40 MG (MILLIGRAM)
  13. PHENPROCOUMON [Concomitant]
     Active Substance: PHENPROCOUMON
  14. IRBESARTAN [Concomitant]
     Active Substance: IRBESARTAN
     Dosage: TABLET, 75 MG (MILLIGRAM)

REACTIONS (3)
  - Necrotising fasciitis [Recovering/Resolving]
  - Vulvovaginal mycotic infection [Unknown]
  - Groin abscess [Unknown]

NARRATIVE: CASE EVENT DATE: 20220401
